FAERS Safety Report 6105760-X (Version None)
Quarter: 2009Q1

REPORT INFORMATION
  Report Type: 
  Country: None (occurrence: None)
  Receive Date: 20090227
  Receipt Date: 20081211
  Transmission Date: 20090719
  Serious: Yes (Hospitalization, Other)
  Sender: FDA-Public Use
  Company Number: RB-7406-2008

PATIENT
  Age: 1 Day

DRUGS (1)
  1. SUBUTEX [Suspect]
     Indication: DRUG DEPENDENCE
     Dosage: 8 MG BID TRANSPLACENTAL
     Route: 064
     Dates: end: 20081120

REACTIONS (1)
  - DRUG WITHDRAWAL SYNDROME NEONATAL [None]
